FAERS Safety Report 13690720 (Version 7)
Quarter: 2019Q4

REPORT INFORMATION
  Report Type: Spontaneous
  Country: US (occurrence: US)
  Receive Date: 20170626
  Receipt Date: 20191220
  Transmission Date: 20200122
  Serious: Yes (Other)
  Sender: FDA-Public Use
  Company Number: US-CLOVIS ONCOLOGY-CLO-2017-000313

PATIENT
  Age: 64 Year
  Sex: Female

DRUGS (8)
  1. RUBRACA [Suspect]
     Active Substance: RUCAPARIB CAMSYLATE
     Indication: OVARIAN CANCER
     Dosage: 600 MG, BID
     Route: 048
     Dates: start: 20170207
  2. RUBRACA [Suspect]
     Active Substance: RUCAPARIB CAMSYLATE
     Dosage: 75 MG, BID
     Route: 048
     Dates: start: 20191031, end: 201911
  3. RUBRACA [Suspect]
     Active Substance: RUCAPARIB CAMSYLATE
     Indication: OVARIAN CANCER
     Dosage: 300 MG, BID
     Route: 048
     Dates: start: 201704, end: 201707
  4. RUBRACA [Suspect]
     Active Substance: RUCAPARIB CAMSYLATE
     Indication: OVARIAN CANCER
     Dosage: 300 MG, QD
     Route: 048
     Dates: start: 201703, end: 201704
  5. RUBRACA [Suspect]
     Active Substance: RUCAPARIB CAMSYLATE
     Dosage: 300 MG, QD
     Route: 048
     Dates: start: 20170727, end: 20180622
  6. RUBRACA [Suspect]
     Active Substance: RUCAPARIB CAMSYLATE
     Dosage: 300 MG, BID
     Route: 048
     Dates: start: 20191009
  7. RUBRACA [Suspect]
     Active Substance: RUCAPARIB CAMSYLATE
     Dosage: 150 MG, BID
     Route: 048
     Dates: start: 201707
  8. AVASTIN [Concomitant]
     Active Substance: BEVACIZUMAB
     Indication: PRODUCT USED FOR UNKNOWN INDICATION
     Dosage: UNK
     Dates: start: 20191212

REACTIONS (20)
  - Rectal haemorrhage [Unknown]
  - White blood cell count decreased [Unknown]
  - Product dose omission [Unknown]
  - Anaemia [Recovering/Resolving]
  - Fatigue [Not Recovered/Not Resolved]
  - Prescribed underdose [Unknown]
  - Oropharyngeal pain [Unknown]
  - Adverse drug reaction [Unknown]
  - Dyspnoea [Unknown]
  - Carbohydrate antigen 125 increased [Unknown]
  - Nasopharyngitis [Unknown]
  - Nausea [Unknown]
  - Thrombocytopenia [Recovering/Resolving]
  - Urinary tract infection [Unknown]
  - Blood test abnormal [Unknown]
  - Contusion [Unknown]
  - Tumour marker increased [Unknown]
  - Petechiae [Unknown]
  - Headache [Unknown]
  - Wrong technique in product usage process [Unknown]

NARRATIVE: CASE EVENT DATE: 2017
